FAERS Safety Report 23698607 (Version 5)
Quarter: 2025Q1

REPORT INFORMATION
  Report Type: Spontaneous
  Country: US (occurrence: US)
  Receive Date: 20240402
  Receipt Date: 20250307
  Transmission Date: 20250408
  Serious: No
  Sender: SANOFI AVENTIS
  Company Number: US-SA-SAC20240326000851

PATIENT
  Age: 17 Year
  Sex: Male

DRUGS (2)
  1. TZIELD [Suspect]
     Active Substance: TEPLIZUMAB-MZWV
     Indication: Type 1 diabetes mellitus
     Dosage: UNK, QD
     Route: 042
     Dates: start: 20230605, end: 20230618
  2. IBUPROFEN [Concomitant]
     Active Substance: IBUPROFEN
     Dates: start: 2023

REACTIONS (8)
  - Pain [Unknown]
  - Peripheral swelling [Unknown]
  - Influenza like illness [Recovered/Resolved]
  - Burning sensation [Unknown]
  - Somnolence [Recovered/Resolved]
  - Rash pruritic [Recovered/Resolved]
  - Headache [Recovered/Resolved]
  - Rash erythematous [Recovered/Resolved]

NARRATIVE: CASE EVENT DATE: 20230601
